FAERS Safety Report 24120187 (Version 2)
Quarter: 2024Q3

REPORT INFORMATION
  Report Type: Spontaneous
  Country: GB (occurrence: GB)
  Receive Date: 20240722
  Receipt Date: 20240816
  Transmission Date: 20241017
  Serious: Yes (Hospitalization, Other)
  Sender: MYLAN
  Company Number: GB-MYLANLABS-2024M1066713

PATIENT
  Sex: Male

DRUGS (1)
  1. CLOZARIL [Suspect]
     Active Substance: CLOZAPINE
     Indication: Schizophrenia
     Dosage: UNK
     Route: 048
     Dates: start: 20010701

REACTIONS (4)
  - Overdose [Unknown]
  - White blood cell count decreased [Recovered/Resolved]
  - Haemoglobin decreased [Unknown]
  - Eosinophil count decreased [Not Recovered/Not Resolved]

NARRATIVE: CASE EVENT DATE: 20240607
